FAERS Safety Report 5408643-3 (Version None)
Quarter: 2007Q3

REPORT INFORMATION
  Report Type: 
  Country: None (occurrence: None)
  Receive Date: 20070808
  Receipt Date: 20070802
  Transmission Date: 20080115
  Serious: Yes (Other)
  Sender: FDA-Public Use
  Company Number: US-ASTRAZENECA-2007UW18614

PATIENT
  Age: 77 Year
  Sex: Female

DRUGS (6)
  1. CRESTOR [Suspect]
     Indication: BLOOD CHOLESTEROL INCREASED
     Route: 048
     Dates: start: 20030101, end: 20030101
  2. IMDUR [Concomitant]
  3. STARLIX [Concomitant]
  4. ACTOS [Concomitant]
  5. GLUCOPHAGE [Concomitant]
  6. NORVASC [Concomitant]

REACTIONS (5)
  - ABASIA [None]
  - ALOPECIA [None]
  - FALL [None]
  - JOINT INJURY [None]
  - PAIN [None]
